FAERS Safety Report 19083268 (Version 1)
Quarter: 2021Q2

REPORT INFORMATION
  Report Type: Spontaneous
  Country: PT (occurrence: PT)
  Receive Date: 20210401
  Receipt Date: 20210401
  Transmission Date: 20210717
  Serious: Yes (Other)
  Sender: FDA-Public Use
  Company Number: PT-ENDO PHARMACEUTICALS INC-2021-001858

PATIENT
  Age: 9 Year
  Sex: Male

DRUGS (2)
  1. ACETAZOLAMIDE SODIUM. [Suspect]
     Active Substance: ACETAZOLAMIDE SODIUM
     Indication: IDIOPATHIC INTRACRANIAL HYPERTENSION
     Dosage: UNK UNKNOWN, UNKNOWN
     Route: 065
  2. ACETAZOLAMIDE SODIUM. [Suspect]
     Active Substance: ACETAZOLAMIDE SODIUM
     Dosage: UNK UNKNOWN, UNKNOWN
     Route: 065

REACTIONS (3)
  - Granuloma annulare [Recovered/Resolved]
  - Off label use [Recovered/Resolved]
  - Metabolic acidosis [Unknown]
